FAERS Safety Report 15279724 (Version 1)
Quarter: 2018Q3

REPORT INFORMATION
  Report Type: Spontaneous
  Country: US (occurrence: US)
  Receive Date: 20180730
  Receipt Date: 20180730
  Transmission Date: 20181010
  Serious: No
  Sender: FDA-Public Use
  Company Number: None

PATIENT
  Sex: Female
  Weight: 99.79 kg

DRUGS (4)
  1. METHOTREXATE 50MG/2ML [Suspect]
     Active Substance: METHOTREXATE
     Indication: RHEUMATOID ARTHRITIS
     Route: 058
     Dates: start: 201509
  2. METHOTREXATE 50MG/2ML [Suspect]
     Active Substance: METHOTREXATE
     Indication: PSORIASIS
     Route: 058
     Dates: start: 201509
  3. HUMIRA [Concomitant]
     Active Substance: ADALIMUMAB
  4. CHANTIX [Suspect]
     Active Substance: VARENICLINE TARTRATE

REACTIONS (2)
  - Malaise [None]
  - Rheumatoid arthritis [None]
